FAERS Safety Report 10029504 (Version 4)
Quarter: 2015Q1

REPORT INFORMATION
  Report Type: Report from Study
  Country: KR (occurrence: KR)
  Receive Date: 20140322
  Receipt Date: 20150202
  Transmission Date: 20150720
  Serious: Yes (Hospitalization)
  Sender: FDA-Public Use
  Company Number: KR-ROCHE-1367142

PATIENT
  Age: 43 Year
  Sex: Male
  Weight: 68.3 kg

DRUGS (31)
  1. PREDNISONE. [Suspect]
     Active Substance: PREDNISONE
     Indication: DIFFUSE LARGE B-CELL LYMPHOMA
     Dosage: DOSE OF LAST PREDNISONE 100 MG ?DATE OF MOST RECENT DOSE OF PREDNISONE PRIOR TO AE ONSET 09/MAR/2014
     Route: 048
     Dates: start: 20131030
  2. ACETAMINOPHEN. [Concomitant]
     Active Substance: ACETAMINOPHEN
     Indication: PROCTALGIA
     Route: 065
     Dates: start: 20140305, end: 20140305
  3. CHLORPHENIRAMINE [Concomitant]
     Active Substance: CHLORPHENIRAMINE
     Indication: PREMEDICATION
     Route: 065
     Dates: start: 20140305, end: 20140305
  4. ACETAMINOPHEN. [Concomitant]
     Active Substance: ACETAMINOPHEN
     Indication: STOMATITIS
     Route: 065
     Dates: start: 20140312, end: 20140312
  5. KYTRIL [Concomitant]
     Active Substance: GRANISETRON HYDROCHLORIDE
     Route: 065
     Dates: start: 20140305, end: 20140305
  6. GASTER (SOUTH KOREA) [Concomitant]
     Indication: STOMATITIS
  7. NESP [Concomitant]
     Active Substance: DARBEPOETIN ALFA
     Route: 065
     Dates: start: 20140303, end: 20140303
  8. CHLORPHENIRAMINE [Concomitant]
     Active Substance: CHLORPHENIRAMINE
     Route: 065
     Dates: start: 20140315, end: 20140315
  9. IFECTRA [Concomitant]
     Route: 065
     Dates: start: 20131022
  10. SMECTA [Concomitant]
     Active Substance: MONTMORILLONITE
     Route: 065
     Dates: start: 20131109
  11. NESP [Concomitant]
     Active Substance: DARBEPOETIN ALFA
     Indication: ANAEMIA
     Route: 065
     Dates: start: 20140217, end: 20140217
  12. NEURONTIN (SOUTH KOREA) [Concomitant]
     Indication: PERIPHERAL SENSORY NEUROPATHY
     Route: 065
     Dates: start: 20140217, end: 20140316
  13. IRCODON [Concomitant]
     Indication: URETHRAL PAIN
  14. GABAPENTIN. [Concomitant]
     Active Substance: GABAPENTIN
     Indication: PROPHYLAXIS
     Route: 065
     Dates: start: 20140315, end: 20140409
  15. OBINUTUZUMAB [Suspect]
     Active Substance: OBINUTUZUMAB
     Indication: DIFFUSE LARGE B-CELL LYMPHOMA
     Dosage: DOSE CONCENTRATION OF LAST GA101 TAKEN 4 MG/ML?VOLUME OF LAST GA101 TAKEN 250 ML  ?DATE OF MOST RECE
     Route: 042
     Dates: start: 20131030
  16. CYCLOPHOSPHAMIDE. [Suspect]
     Active Substance: CYCLOPHOSPHAMIDE
     Indication: DIFFUSE LARGE B-CELL LYMPHOMA
     Dosage: DOSE OF LAST CYCLOPHOSPHAMIDE TAKEN 1418 MG  ?DATE OF MOST RECENT DOSE OF CYCLOPHOSPHAMIDE PRIOR TO
     Route: 042
     Dates: start: 20131030
  17. VINCRISTINE [Suspect]
     Active Substance: VINCRISTINE
     Indication: DIFFUSE LARGE B-CELL LYMPHOMA
     Dosage: DOSE OF LAST VINCRISTINE TAKEN 2 MG?DATE OF MOST RECENT DOSE OF VINCRISTINE PRIOR TO AE ONSET 05/MAR
     Route: 040
     Dates: start: 20131030
  18. ALLOPURINOL. [Concomitant]
     Active Substance: ALLOPURINOL
     Indication: TUMOUR LYSIS SYNDROME
     Route: 065
     Dates: start: 20131022
  19. DEXTROSE/POTASSIUM CHLORIDE/SODIUM CHLORIDE [Concomitant]
     Route: 065
     Dates: start: 20140315, end: 20140319
  20. IRCODON [Concomitant]
     Indication: PAIN
     Route: 065
     Dates: start: 20140319, end: 20140404
  21. TACENOL [Concomitant]
     Route: 065
     Dates: start: 20131113, end: 20140311
  22. CITOPCIN [Concomitant]
     Route: 065
     Dates: start: 20131022
  23. ACETAMINOPHEN. [Concomitant]
     Active Substance: ACETAMINOPHEN
     Indication: PREMEDICATION
     Route: 065
     Dates: start: 20131113
  24. EMEND [Concomitant]
     Active Substance: APREPITANT
     Route: 065
     Dates: start: 20140305, end: 20140307
  25. AMOXICILLIN/CLAVULANIC ACID [Concomitant]
     Active Substance: AMOXICILLIN\CLAVULANIC ACID
     Indication: CYSTITIS HAEMORRHAGIC
     Route: 065
     Dates: start: 20140319, end: 20140327
  26. ALDRIN [Concomitant]
     Indication: STOMATITIS
     Route: 065
     Dates: start: 20131022
  27. UROMITEXAN [Concomitant]
     Active Substance: MESNA
     Indication: PROPHYLAXIS
     Route: 065
     Dates: start: 20140305, end: 20140305
  28. CORTISOLU [Concomitant]
     Indication: PREMEDICATION
     Route: 065
     Dates: start: 20140305, end: 20140305
  29. JURNISTA [Concomitant]
     Active Substance: HYDROMORPHONE HYDROCHLORIDE
     Indication: URETHRAL PAIN
     Route: 065
     Dates: start: 20140315, end: 20140319
  30. LEVOFEXIN [Concomitant]
     Indication: CYSTITIS HAEMORRHAGIC
     Route: 065
     Dates: start: 20140319, end: 20140409
  31. DOXORUBICIN [Suspect]
     Active Substance: DOXORUBICIN
     Indication: DIFFUSE LARGE B-CELL LYMPHOMA
     Dosage: DOSE OF LAST DOXORUBICIN TAKEN 71 MG?DATE OF MOST RECENT DOSE OF DOXORUBICIN PRIOR TO AE ONSET 05/MA
     Route: 042
     Dates: start: 20131030

REACTIONS (1)
  - Febrile neutropenia [Recovered/Resolved]

NARRATIVE: CASE EVENT DATE: 20140312
